FAERS Safety Report 5163192-5 (Version None)
Quarter: 2006Q4

REPORT INFORMATION
  Report Type: 
  Country: None (occurrence: None)
  Receive Date: 20061204
  Receipt Date: 20061120
  Transmission Date: 20070319
  Serious: Yes (Congenital Anomaly, Other)
  Sender: FDA-Public Use
  Company Number: US-JNJFOC-20061105978

PATIENT
  Sex: Female
  Weight: 2.99 kg

DRUGS (5)
  1. TOPAMAX [Suspect]
     Indication: DRUG EXPOSURE DURING PREGNANCY
  2. RELPAX [Concomitant]
     Indication: DRUG EXPOSURE DURING PREGNANCY
     Route: 015
  3. PINDOLOL [Concomitant]
     Indication: DRUG EXPOSURE DURING PREGNANCY
     Route: 015
  4. ZOFRAN [Concomitant]
     Indication: DRUG EXPOSURE DURING PREGNANCY
     Route: 015
  5. REGLAN [Concomitant]
     Indication: DRUG EXPOSURE DURING PREGNANCY
     Route: 015

REACTIONS (2)
  - POLYDACTYLY [None]
  - UMBILICAL CORD AROUND NECK [None]
